FAERS Safety Report 9886571 (Version 1)
Quarter: 2014Q1

REPORT INFORMATION
  Report Type: Spontaneous
  Country: US (occurrence: US)
  Receive Date: 20140210
  Receipt Date: 20140210
  Transmission Date: 20141002
  Serious: Yes (Hospitalization)
  Sender: FDA-Public Use
  Company Number: US-ELI_LILLY_AND_COMPANY-US201401010662

PATIENT
  Age: 13 Year
  Sex: Male

DRUGS (1)
  1. HUMALOG LISPRO [Suspect]
     Indication: PRODUCT USED FOR UNKNOWN INDICATION
     Route: 058

REACTIONS (7)
  - Blood glucose increased [Unknown]
  - Blood glucose increased [Unknown]
  - Thirst [Unknown]
  - Pollakiuria [Unknown]
  - Blood ketone body [Unknown]
  - Abdominal pain upper [Unknown]
  - Injection site pain [Unknown]
